FAERS Safety Report 25871118 (Version 1)
Quarter: 2025Q4

REPORT INFORMATION
  Report Type: Spontaneous
  Country: US (occurrence: US)
  Receive Date: 20251001
  Receipt Date: 20251001
  Transmission Date: 20260118
  Serious: Yes (Other)
  Sender: DERMARITE INDUSTRIES
  Company Number: US-DERMARITE INDUSTRIES, LLC.-2025-DER-US000045

PATIENT

DRUGS (4)
  1. ZINC ACETATE [Suspect]
     Active Substance: ZINC ACETATE
     Indication: Therapeutic skin care topical
     Dosage: THREE TIMES A WEEK
     Route: 061
     Dates: start: 2025, end: 20250922
  2. LOSARTAN [Concomitant]
     Active Substance: LOSARTAN
     Indication: Product used for unknown indication
     Dosage: UNKNOWN
  3. LIPITOR [Concomitant]
     Active Substance: ATORVASTATIN CALCIUM
     Indication: Product used for unknown indication
     Dosage: UNKNOWN
  4. HYDROCHLOROTHIAZIDE [Concomitant]
     Active Substance: HYDROCHLOROTHIAZIDE
     Indication: Product used for unknown indication
     Dosage: UNK

REACTIONS (1)
  - Wound infection staphylococcal [Unknown]

NARRATIVE: CASE EVENT DATE: 20250901
